FAERS Safety Report 20234583 (Version 2)
Quarter: 2022Q1

REPORT INFORMATION
  Report Type: Spontaneous
  Country: JP (occurrence: JP)
  Receive Date: 20211227
  Receipt Date: 20220329
  Transmission Date: 20220423
  Serious: Yes (Other)
  Sender: FDA-Public Use
  Company Number: JP-KYOWAKIRIN-2021AKK019258

PATIENT
  Age: 64 Year
  Sex: Female

DRUGS (9)
  1. PEGFILGRASTIM [Suspect]
     Active Substance: PEGFILGRASTIM
     Indication: Product used for unknown indication
     Dosage: 3.6 MG, 1X/3 WEEKS
     Route: 058
     Dates: start: 20211015, end: 20211103
  2. DENOSUMAB [Suspect]
     Active Substance: DENOSUMAB
     Indication: Metastases to bone
     Dosage: 120 MG, 1X/MONTH
     Route: 058
     Dates: start: 20210914, end: 20211112
  3. PERJETA [Suspect]
     Active Substance: PERTUZUMAB
     Indication: Breast cancer stage IV
     Dosage: 420 MG, 1X/3 WEEKS (CV)
     Route: 041
     Dates: start: 20210922, end: 20211122
  4. HERCEPTIN [Suspect]
     Active Substance: TRASTUZUMAB
     Indication: Breast cancer stage IV
     Dosage: 314.4 MG, 1X/3 WEEKS (CV)
     Route: 041
     Dates: start: 20210922, end: 20211122
  5. DOCETAXEL [Suspect]
     Active Substance: DOCETAXEL
     Indication: Breast cancer stage IV
     Dosage: 116.4 MG, 1X/3 WEEKS (CV)
     Route: 041
     Dates: start: 20210922, end: 20211122
  6. BISOPROLOL FUMARATE [Concomitant]
     Active Substance: BISOPROLOL FUMARATE
     Indication: Palpitations
     Dosage: 2.5 MG
     Route: 048
     Dates: start: 20211019
  7. DECADRON (DEXAMETHASONE SODIUM PHOSPHATE) [Concomitant]
     Active Substance: DEXAMETHASONE SODIUM PHOSPHATE
     Indication: Product used for unknown indication
     Dosage: 6.6 MG, 1X/3 WEEKS (CV)
     Route: 041
     Dates: start: 20210922
  8. CALCIUM CARBONATE\CHOLECALCIFEROL\MAGNESIUM CARBONATE [Concomitant]
     Active Substance: CALCIUM CARBONATE\CHOLECALCIFEROL\MAGNESIUM CARBONATE
     Indication: Product used for unknown indication
     Dosage: 2 DF
     Route: 048
     Dates: start: 20210915
  9. SODIUM PHOSPHATE, DIBASIC\SODIUM PHOSPHATE, MONOBASIC [Concomitant]
     Active Substance: SODIUM PHOSPHATE, DIBASIC\SODIUM PHOSPHATE, MONOBASIC
     Indication: Product used for unknown indication
     Dosage: 200 MG
     Route: 048
     Dates: start: 20211024

REACTIONS (3)
  - Arrhythmia [Recovered/Resolved]
  - Tachycardia [Recovered/Resolved]
  - Tachycardia [Recovering/Resolving]

NARRATIVE: CASE EVENT DATE: 20211019
